FAERS Safety Report 9852444 (Version 1)
Quarter: 2014Q1

REPORT INFORMATION
  Report Type: Spontaneous
  Country: US (occurrence: None)
  Receive Date: 20140128
  Receipt Date: 20140128
  Transmission Date: 20141002
  Serious: Yes (Life-Threatening, Disabling)
  Sender: FDA-Public Use
  Company Number: None

PATIENT
  Age: 64 Year
  Sex: Female
  Weight: 68.04 kg

DRUGS (1)
  1. ARESTIN [Suspect]
     Dosage: 1 UNIT DOSE CARTRIDGE ONE TIME USE INTO THE MOUTH (PERIODONTAL POCKET)
     Route: 048
     Dates: start: 20131206, end: 20131206

REACTIONS (5)
  - Nausea [None]
  - Pain [None]
  - Diarrhoea [None]
  - Urticaria [None]
  - Pruritus [None]
